FAERS Safety Report 7394814-6 (Version None)
Quarter: 2011Q2

REPORT INFORMATION
  Report Type: 
  Country: None (occurrence: None)
  Receive Date: 20110405
  Receipt Date: 20110330
  Transmission Date: 20111010
  Serious: Yes (Hospitalization)
  Sender: FDA-Public Use
  Company Number: A0788277A

PATIENT
  Age: 54 Year
  Sex: Male
  Weight: 175.9 kg

DRUGS (1)
  1. AVANDIA [Suspect]
     Dosage: 8MG PER DAY
     Route: 048
     Dates: start: 20041101, end: 20070901

REACTIONS (4)
  - WEIGHT INCREASED [None]
  - DIABETES MELLITUS [None]
  - MYOCARDIAL INFARCTION [None]
  - BACK PAIN [None]
